FAERS Safety Report 7560563-4 (Version None)
Quarter: 2011Q2

REPORT INFORMATION
  Report Type: 
  Country: None (occurrence: None)
  Receive Date: 20110621
  Receipt Date: 20110418
  Transmission Date: 20111010
  Serious: Yes (Hospitalization)
  Sender: FDA-Public Use
  Company Number: US-ASTRAZENECA-2011SE18259

PATIENT
  Age: 35 Year
  Sex: Female

DRUGS (2)
  1. PREDNISONE [Concomitant]
  2. ENTOCORT EC [Suspect]
     Indication: CROHN'S DISEASE
     Route: 048

REACTIONS (2)
  - MALAISE [None]
  - DRUG DOSE OMISSION [None]
